FAERS Safety Report 17305839 (Version 1)
Quarter: 2020Q1

REPORT INFORMATION
  Report Type: Report from Study
  Country: IT (occurrence: IT)
  Receive Date: 20200123
  Receipt Date: 20200123
  Transmission Date: 20200409
  Serious: Yes (Other)
  Sender: FDA-Public Use
  Company Number: IT-ROCHE-2524739

PATIENT

DRUGS (10)
  1. IRINOTECAN [Suspect]
     Active Substance: IRINOTECAN
     Indication: RECTAL CANCER
     Dosage: 120-160 MG/M2
     Route: 065
  2. FLUOROURACIL. [Suspect]
     Active Substance: FLUOROURACIL
     Indication: RECTAL CANCER
     Dosage: 750-900 MG/M2 DAY
     Route: 065
  3. AFLIBERCEPT [Suspect]
     Active Substance: AFLIBERCEPT
     Indication: RECTAL CANCER
     Route: 065
  4. RALTITREXED [Suspect]
     Active Substance: RALTITREXED
     Indication: RECTAL CANCER
     Route: 065
  5. CETUXIMAB. [Suspect]
     Active Substance: CETUXIMAB
     Indication: RECTAL CANCER
     Route: 065
  6. PANITUMUMAB [Suspect]
     Active Substance: PANITUMUMAB
     Indication: RECTAL CANCER
     Route: 065
  7. REGORAFENIB. [Suspect]
     Active Substance: REGORAFENIB
     Indication: RECTAL CANCER
     Dosage: 80-160 MG
     Route: 065
  8. CAPECITABINE. [Suspect]
     Active Substance: CAPECITABINE
     Indication: RECTAL CANCER
     Route: 065
  9. BEVACIZUMAB. [Suspect]
     Active Substance: BEVACIZUMAB
     Indication: RECTAL CANCER
     Route: 065
  10. OXALIPLATIN. [Suspect]
     Active Substance: OXALIPLATIN
     Indication: RECTAL CANCER
     Dosage: 70-80 MG/M2
     Route: 065

REACTIONS (17)
  - Wound infection [Unknown]
  - Seroma [Unknown]
  - Scrotal oedema [Unknown]
  - Mucosal inflammation [Unknown]
  - Nausea [Unknown]
  - Vomiting [Unknown]
  - Incision site discharge [Unknown]
  - Alopecia [Unknown]
  - Haematoma [Unknown]
  - Fatigue [Unknown]
  - Pelvic pain [Unknown]
  - Diarrhoea [Unknown]
  - Skin toxicity [Unknown]
  - Vascular device infection [Unknown]
  - Haematotoxicity [Unknown]
  - Bone marrow failure [Unknown]
  - Neurotoxicity [Unknown]
